FAERS Safety Report 24386228 (Version 1)
Quarter: 2024Q4

REPORT INFORMATION
  Report Type: Report from Study
  Country: CA (occurrence: CA)
  Receive Date: 20241001
  Receipt Date: 20241001
  Transmission Date: 20250115
  Serious: Yes (Disabling, Other)
  Sender: SAMSUNG BIOEPIS
  Company Number: CA-SAMSUNG BIOEPIS-SB-2024-29126

PATIENT
  Age: 89 Year
  Sex: Male

DRUGS (1)
  1. HADLIMA [Suspect]
     Active Substance: ADALIMUMAB-BWWD
     Indication: Uveitis
     Dosage: 40MG/0.8ML;
     Dates: start: 20240204

REACTIONS (3)
  - Bedridden [Unknown]
  - Viral infection [Unknown]
  - Dementia [Unknown]

NARRATIVE: CASE EVENT DATE: 20240401
